FAERS Safety Report 5964623-0 (Version None)
Quarter: 2008Q4

REPORT INFORMATION
  Report Type: 
  Country: None (occurrence: None)
  Receive Date: 20081125
  Receipt Date: 20081120
  Transmission Date: 20090506
  Serious: Yes (Hospitalization, Other)
  Sender: FDA-Public Use
  Company Number: JP-ABBOTT-08P-087-0485092-00

PATIENT
  Sex: Male

DRUGS (12)
  1. HUMIRA [Suspect]
     Indication: RHEUMATOID ARTHRITIS
     Route: 058
     Dates: start: 20080802, end: 20080912
  2. MIZORIBINE [Concomitant]
     Indication: RHEUMATOID ARTHRITIS
  3. PREDNISOLONE SODIUM PHOSPHATE [Concomitant]
     Indication: RHEUMATOID ARTHRITIS
     Route: 048
  4. TIOPRONIN [Concomitant]
     Indication: DRUG USE FOR UNKNOWN INDICATION
     Dosage: 100 MG DAILY
  5. AMPIROXICAM [Concomitant]
     Indication: RHEUMATOID ARTHRITIS
     Dosage: 27 MG DAILY
     Dates: end: 20081013
  6. ALFACALCIDOL [Concomitant]
     Indication: DRUG USE FOR UNKNOWN INDICATION
     Dosage: 0.5 MICROGRAM DAILY
     Dates: end: 20080925
  7. RABEPRAZOLE SODIUM [Concomitant]
     Indication: DRUG USE FOR UNKNOWN INDICATION
     Dosage: 10 MG DAILY
     Dates: end: 20080925
  8. GLYBURIDE [Concomitant]
     Indication: DRUG USE FOR UNKNOWN INDICATION
     Dosage: 2.5 MG DAILY
  9. PIOGLITAZONE HYDROCHLORIDE [Concomitant]
     Indication: DRUG USE FOR UNKNOWN INDICATION
     Dosage: 15 MG DAILY
  10. VOGLIBOSE [Concomitant]
     Indication: DRUG USE FOR UNKNOWN INDICATION
     Dosage: 0.3 MG DAILY
  11. ISONIAZID [Concomitant]
     Indication: DRUG USE FOR UNKNOWN INDICATION
     Dosage: 400 MG DAILY
     Dates: start: 20080808
  12. PYRIDOXAL PHOSPHATE [Concomitant]
     Indication: DRUG USE FOR UNKNOWN INDICATION
     Dosage: 20 MG DAILY
     Dates: start: 20080808

REACTIONS (5)
  - FEELING ABNORMAL [None]
  - NASOPHARYNGITIS [None]
  - PLEURAL EFFUSION [None]
  - PLEURISY [None]
  - RHEUMATOID ARTHRITIS [None]
